FAERS Safety Report 7538098-4 (Version None)
Quarter: 2011Q2

REPORT INFORMATION
  Report Type: 
  Country: None (occurrence: None)
  Receive Date: 20110609
  Receipt Date: 20010430
  Transmission Date: 20111010
  Serious: Yes (Death)
  Sender: FDA-Public Use
  Company Number: PHFR2001GB01434

PATIENT
  Sex: Male

DRUGS (10)
  1. COTRIM [Concomitant]
     Indication: PROPHYLAXIS
  2. PYRIDOXINE [Concomitant]
     Indication: ANAEMIA
  3. ASPIRIN [Concomitant]
     Indication: PROPHYLAXIS
  4. SENNA-MINT WAF [Concomitant]
     Indication: CONSTIPATION
  5. RANITIDINE [Concomitant]
     Indication: PROPHYLAXIS
  6. GLICLAZIDE [Concomitant]
     Indication: DIABETES MELLITUS
  7. IBUPROFEN [Concomitant]
     Indication: PROPHYLAXIS
  8. ANFOTERICINA [Concomitant]
  9. LACTULOSE [Concomitant]
     Indication: CONSTIPATION
  10. NEORAL [Suspect]
     Indication: RENAL TRANSPLANT
     Dosage: 650 MG, QD
     Route: 048
     Dates: start: 19960201

REACTIONS (1)
  - MYOCARDIAL INFARCTION [None]
